FAERS Safety Report 8229743-9 (Version None)
Quarter: 2012Q1

REPORT INFORMATION
  Report Type: 
  Country: None (occurrence: None)
  Receive Date: 20120322
  Receipt Date: 20120313
  Transmission Date: 20120608
  Serious: Yes (Hospitalization)
  Sender: FDA-Public Use
  Company Number: NO-ASTRAZENECA-2012SE17128

PATIENT
  Age: 64 Year
  Sex: Female

DRUGS (4)
  1. ARTHROTEC [Concomitant]
  2. SIMVASTATIN [Concomitant]
  3. LOSARTAN POTASSIUM AND HYDROCHLOROTHIAZIDE [Suspect]
     Indication: HYPERTENSION
     Route: 048
  4. OMEPRAZOLE [Suspect]
     Route: 048

REACTIONS (2)
  - TREMOR [None]
  - RENAL IMPAIRMENT [None]
